FAERS Safety Report 21890831 (Version 1)
Quarter: 2023Q1

REPORT INFORMATION
  Report Type: Spontaneous
  Country: US (occurrence: US)
  Receive Date: 20230120
  Receipt Date: 20230120
  Transmission Date: 20230417
  Serious: No
  Sender: FDA-Public Use
  Company Number: US-ANTARES PHARMA, INC.-2022-SPO-TU-0007

PATIENT

DRUGS (2)
  1. TLANDO [Suspect]
     Active Substance: TESTOSTERONE UNDECANOATE
     Indication: Hypogonadism
     Dosage: 112.5 MILLIGRAM, BID
     Route: 048
  2. Unspecified Diabetes Medication [Concomitant]
     Indication: Diabetes mellitus
     Route: 048

REACTIONS (1)
  - Drug ineffective [Unknown]
